FAERS Safety Report 14557178 (Version 1)
Quarter: 2018Q1

REPORT INFORMATION
  Report Type: Spontaneous
  Country: US (occurrence: US)
  Receive Date: 20180219
  Receipt Date: 20180219
  Transmission Date: 20180509
  Serious: Yes (Death, Life-Threatening, Hospitalization, Disabling)
  Sender: FDA-Public Use
  Company Number: None

PATIENT
  Age: 75 Year
  Sex: Female
  Weight: 66.23 kg

DRUGS (10)
  1. TRAMADOL. [Concomitant]
     Active Substance: TRAMADOL
  2. FOLIC ACID. [Concomitant]
     Active Substance: FOLIC ACID
  3. FISH OIL [Concomitant]
     Active Substance: FISH OIL
  4. MULTIVITAMINS [Concomitant]
     Active Substance: VITAMINS
  5. DULOXETINE. [Suspect]
     Active Substance: DULOXETINE
     Indication: ANXIETY
     Route: 048
     Dates: start: 20170217, end: 20170526
  6. TRAZODONE [Concomitant]
     Active Substance: TRAZODONE HYDROCHLORIDE
  7. OMEPRAZOLE. [Concomitant]
     Active Substance: OMEPRAZOLE
  8. METOPROLOL. [Concomitant]
     Active Substance: METOPROLOL
  9. DULOXETINE. [Concomitant]
     Active Substance: DULOXETINE
  10. VITAMIN B12 [Concomitant]
     Active Substance: CYANOCOBALAMIN

REACTIONS (10)
  - Abdominal pain [None]
  - Vision blurred [None]
  - Toxicity to various agents [None]
  - Dizziness [None]
  - Fall [None]
  - Decreased appetite [None]
  - Vomiting [None]
  - Dysuria [None]
  - Nausea [None]
  - Hepatic failure [None]

NARRATIVE: CASE EVENT DATE: 20170323
